FAERS Safety Report 23409707 (Version 1)
Quarter: 2024Q1

REPORT INFORMATION
  Report Type: Spontaneous
  Country: US (occurrence: US)
  Receive Date: 20240117
  Receipt Date: 20240117
  Transmission Date: 20240409
  Serious: Yes (Other)
  Sender: FDA-Public Use
  Company Number: US-INCYTE CORPORATION-2024IN000349

PATIENT

DRUGS (3)
  1. JAKAFI [Suspect]
     Active Substance: RUXOLITINIB
     Indication: Acute graft versus host disease
     Dosage: UNK
     Route: 065
  2. JAKAFI [Suspect]
     Active Substance: RUXOLITINIB
     Indication: Graft versus host disease
     Dosage: TAPER AT 10 MONTHS AFTER INITIATION
     Route: 065
  3. BELUMOSUDIL [Concomitant]
     Active Substance: BELUMOSUDIL
     Indication: Product used for unknown indication
     Dosage: UNK
     Route: 065
     Dates: start: 202310

REACTIONS (4)
  - Bronchiolitis obliterans syndrome [Not Recovered/Not Resolved]
  - Chronic graft versus host disease in eye [Recovering/Resolving]
  - Chronic graft versus host disease oral [Recovering/Resolving]
  - Condition aggravated [Not Recovered/Not Resolved]
